FAERS Safety Report 4351176-6 (Version None)
Quarter: 2004Q2

REPORT INFORMATION
  Report Type: 
  Country: None (occurrence: None)
  Receive Date: 20040428
  Receipt Date: 20031113
  Transmission Date: 20050107
  Serious: Yes (Hospitalization)
  Sender: FDA-Public Use
  Company Number: US-JNJFOC-20031001307

PATIENT
  Age: 54 Year
  Sex: Female

DRUGS (9)
  1. ULTRAM [Suspect]
     Indication: DRUG USE FOR UNKNOWN INDICATION
     Route: 048
  2. EFFEXOR [Suspect]
     Indication: DEPRESSION
     Dosage: 150 MG, 1 IN 1 DAY, ORAL
     Route: 048
  3. PROVIGIL [Suspect]
     Indication: DEPRESSION
     Dates: start: 20030728, end: 20030801
  4. LEVOXYL [Concomitant]
  5. PROTONIX [Concomitant]
  6. NORCO (VICODIN) [Concomitant]
  7. LASIX [Concomitant]
  8. ALDACTONE [Concomitant]
  9. NEURONTIN [Concomitant]

REACTIONS (3)
  - CONVULSION [None]
  - DRUG INTERACTION [None]
  - GASTROINTESTINAL HAEMORRHAGE [None]
